FAERS Safety Report 16326608 (Version 3)
Quarter: 2023Q4

REPORT INFORMATION
  Report Type: Spontaneous
  Country: US (occurrence: US)
  Receive Date: 20190517
  Receipt Date: 20231011
  Transmission Date: 20240109
  Serious: Yes (Other)
  Sender: FDA-Public Use
  Company Number: US-GILEAD-2019-0408304

PATIENT
  Sex: Male
  Weight: 79.365 kg

DRUGS (28)
  1. VIREAD [Suspect]
     Active Substance: TENOFOVIR DISOPROXIL FUMARATE
     Indication: HIV infection
     Dosage: UNK
     Route: 048
     Dates: start: 20091210, end: 20100319
  2. TRUVADA [Suspect]
     Active Substance: EMTRICITABINE\TENOFOVIR DISOPROXIL FUMARATE
     Indication: HIV infection
     Dosage: UNK
     Route: 048
     Dates: start: 20090626, end: 20090822
  3. RENVELA [Concomitant]
     Active Substance: SEVELAMER CARBONATE
     Indication: Blood phosphorus
     Dosage: UNK
     Dates: start: 20100705, end: 20161213
  4. CALCIUM ACETATE [Concomitant]
     Active Substance: CALCIUM ACETATE
     Indication: Blood phosphorus
     Dosage: UNK
     Dates: start: 20130627, end: 20190611
  5. SENSIPAR [Concomitant]
     Active Substance: CINACALCET HYDROCHLORIDE
     Indication: Hyperparathyroidism
     Dosage: UNK
     Dates: start: 20130806, end: 20150121
  6. CARVEDILOL [Concomitant]
     Active Substance: CARVEDILOL
     Indication: Hypertension
     Dosage: UNK
     Dates: start: 20171128, end: 20180912
  7. HYDRALAZINE [Concomitant]
     Active Substance: HYDRALAZINE HYDROCHLORIDE
     Dosage: UNK
     Dates: start: 20130627, end: 20150812
  8. AMLODIPINE [Concomitant]
     Active Substance: AMLODIPINE BESYLATE
     Dosage: UNK
     Dates: start: 20130627
  9. LOSARTAN [Concomitant]
     Active Substance: LOSARTAN
     Dosage: UNK
     Dates: start: 20140106
  10. METOPROLOL [Concomitant]
     Active Substance: METOPROLOL
     Dosage: UNK
     Dates: start: 20170623
  11. FOSRENOL [Concomitant]
     Active Substance: LANTHANUM CARBONATE
     Indication: Blood phosphorus
     Dosage: UNK
     Dates: start: 20090811, end: 20140523
  12. LASIX [Concomitant]
     Active Substance: FUROSEMIDE
     Indication: Diuretic therapy
     Dosage: UNK
     Dates: start: 20130611, end: 20130930
  13. HECTOROL [Concomitant]
     Active Substance: DOXERCALCIFEROL
     Indication: Hyperparathyroidism
     Dosage: UNK
     Dates: start: 20130621, end: 20150803
  14. EPOGEN [Concomitant]
     Active Substance: ERYTHROPOIETIN
     Indication: Anaemia
     Dosage: UNK
     Dates: start: 20130708, end: 20160714
  15. ERYTHROPOIETIN [Concomitant]
     Active Substance: ERYTHROPOIETIN
     Indication: Anaemia
     Dosage: UNK
     Dates: start: 20160714
  16. VENOFER [Concomitant]
     Active Substance: IRON SUCROSE
     Indication: Anaemia
     Dosage: UNK
     Dates: start: 20130704, end: 20130725
  17. FERROUS SULFATE [Concomitant]
     Active Substance: FERROUS SULFATE
     Indication: Anaemia
     Dosage: UNK
     Dates: start: 20180808
  18. PHOSLO [Concomitant]
     Active Substance: CALCIUM ACETATE
     Indication: Blood phosphorus
     Dosage: UNK
     Dates: start: 20130628, end: 20131023
  19. PROMETHAZINE [Concomitant]
     Active Substance: PROMETHAZINE HYDROCHLORIDE
     Dosage: UNK
     Dates: start: 2009
  20. EMTRIVA [Concomitant]
     Active Substance: EMTRICITABINE
     Indication: HIV infection
     Dosage: UNK
     Dates: start: 20091210
  21. EPIVIR [Concomitant]
     Active Substance: LAMIVUDINE
     Indication: HIV infection
     Dosage: UNK
     Dates: start: 20090528
  22. ISENTRESS [Concomitant]
     Active Substance: RALTEGRAVIR POTASSIUM
     Indication: HIV infection
     Dosage: UNK
     Dates: start: 20110929, end: 20190626
  23. NORVIR [Concomitant]
     Active Substance: RITONAVIR
     Indication: HIV infection
     Dosage: UNK
     Dates: start: 20090528, end: 20190401
  24. PREZISTA [Concomitant]
     Active Substance: DARUNAVIR ETHANOLATE
     Indication: HIV infection
     Dosage: UNK
     Dates: start: 20110929, end: 20190730
  25. REYATAZ [Concomitant]
     Active Substance: ATAZANAVIR SULFATE
     Indication: HIV infection
     Dosage: UNK
     Dates: start: 20090528
  26. ZERIT [Concomitant]
     Active Substance: STAVUDINE
     Indication: HIV infection
     Dosage: UNK
     Dates: start: 20090528
  27. GABAPENTIN [Concomitant]
     Active Substance: GABAPENTIN
     Indication: Neuropathy peripheral
     Dosage: UNK
     Dates: start: 20090621, end: 20110929
  28. LYRICA [Concomitant]
     Active Substance: PREGABALIN
     Indication: Neuropathy peripheral
     Dosage: UNK
     Dates: start: 20130216

REACTIONS (18)
  - Bipolar disorder [Not Recovered/Not Resolved]
  - Renal failure [Not Recovered/Not Resolved]
  - Emotional distress [Not Recovered/Not Resolved]
  - Injury [Unknown]
  - Anhedonia [Not Recovered/Not Resolved]
  - Economic problem [Not Recovered/Not Resolved]
  - General physical health deterioration [Unknown]
  - Depression [Not Recovered/Not Resolved]
  - Anxiety [Not Recovered/Not Resolved]
  - Pain [Not Recovered/Not Resolved]
  - Peripheral swelling [Unknown]
  - Arthralgia [Unknown]
  - Musculoskeletal stiffness [Unknown]
  - Vomiting [Unknown]
  - Insomnia [Unknown]
  - Deformity [Unknown]
  - Asthenia [Unknown]
  - Libido decreased [Unknown]
